FAERS Safety Report 6600485-6 (Version None)
Quarter: 2010Q1

REPORT INFORMATION
  Report Type: 
  Country: None (occurrence: None)
  Receive Date: 20100223
  Receipt Date: 20100223
  Transmission Date: 20100710
  Serious: Yes (Other)
  Sender: FDA-Public Use
  Company Number: None

PATIENT
  Age: 42 Year
  Sex: Female
  Weight: 61.2356 kg

DRUGS (3)
  1. CYMBALTA [Suspect]
     Indication: ANXIETY
     Dosage: 30 MG SID PO
     Route: 048
     Dates: start: 20090415, end: 20100216
  2. GABAPENTIN [Suspect]
  3. DIPHENHYDRAMINE HYDROCHLORIDE [Suspect]

REACTIONS (6)
  - ANORGASMIA [None]
  - DISORIENTATION [None]
  - DIZZINESS [None]
  - IMPAIRED WORK ABILITY [None]
  - LOSS OF LIBIDO [None]
  - NAUSEA [None]
